FAERS Safety Report 18411502 (Version 2)
Quarter: 2020Q4

REPORT INFORMATION
  Report Type: Report from Study
  Country: AU (occurrence: AU)
  Receive Date: 20201021
  Receipt Date: 20201204
  Transmission Date: 20210114
  Serious: Yes (Hospitalization, Other)
  Sender: FDA-Public Use
  Company Number: AU-AMGEN-AUSSL2020168758

PATIENT
  Sex: Female

DRUGS (1)
  1. PROLIA [Suspect]
     Active Substance: DENOSUMAB
     Indication: OSTEOPOROSIS
     Dosage: 60 MILLIGRAM PER MILLILITRE, Q6MO
     Route: 058

REACTIONS (3)
  - Fall [Unknown]
  - Fracture [Unknown]
  - Adverse drug reaction [Unknown]
